FAERS Safety Report 17938558 (Version 1)
Quarter: 2020Q2

REPORT INFORMATION
  Report Type: Spontaneous
  Country: US (occurrence: US)
  Receive Date: 20200624
  Receipt Date: 20200624
  Transmission Date: 20200714
  Serious: Yes (Hospitalization)
  Sender: FDA-Public Use
  Company Number: US-MYLANLABS-2020M1058748

PATIENT
  Age: 27 Year
  Sex: Male
  Weight: 80 kg

DRUGS (5)
  1. METHOTREXATE. [Suspect]
     Active Substance: METHOTREXATE
     Indication: PRODUCT USED FOR UNKNOWN INDICATION
     Dosage: 2.5 MILLIGRAM, 30 TABLETS
     Route: 048
  2. PREDNISONE. [Suspect]
     Active Substance: PREDNISONE
     Indication: PRODUCT USED FOR UNKNOWN INDICATION
     Dosage: 10 MILLIGRAM, 30 TABLETS
     Route: 048
  3. DIAZEPAM. [Suspect]
     Active Substance: DIAZEPAM
     Indication: ELECTROCARDIOGRAM QRS COMPLEX PROLONGED
     Dosage: ADMINISTERED OVER 30 MINUTES, APPROXIMATELY 4 HOURS [5 MG IV ONCE AT THE COMMUNITY HOSPITAL]
     Route: 040
  4. DIAZEPAM. [Suspect]
     Active Substance: DIAZEPAM
     Indication: ELECTROCARDIOGRAM QT PROLONGED
     Dosage: 80MG IV BOLUS PLUS 39MG IV FROM THE INTERMITTENT BOLUSES EVERY 2 HOURS TERTIARY CENTER
     Route: 040
  5. HYDROXYCHLOROQUINE [Suspect]
     Active Substance: HYDROXYCHLOROQUINE
     Indication: PRODUCT USED FOR UNKNOWN INDICATION
     Dosage: 200 MILLIGRAM, 20 TABLETS
     Route: 048

REACTIONS (12)
  - Hypokalaemia [Recovered/Resolved]
  - Haematology test abnormal [Recovering/Resolving]
  - Electrocardiogram QT prolonged [Recovering/Resolving]
  - Ventricular tachycardia [Recovering/Resolving]
  - Vomiting [Unknown]
  - Nausea [Unknown]
  - Somnolence [Unknown]
  - Overdose [Recovering/Resolving]
  - Suicide attempt [Recovering/Resolving]
  - Electrocardiogram QRS complex prolonged [Recovering/Resolving]
  - Toxicity to various agents [Recovering/Resolving]
  - Muscular weakness [Unknown]
